FAERS Safety Report 14899772 (Version 1)
Quarter: 2018Q2

REPORT INFORMATION
  Report Type: Spontaneous
  Country: US (occurrence: US)
  Receive Date: 20180516
  Receipt Date: 20180516
  Transmission Date: 20180711
  Serious: Yes (Other)
  Sender: FDA-Public Use
  Company Number: US-STRIDES ARCOLAB LIMITED-2017SP014419

PATIENT

DRUGS (3)
  1. VANCOMYCIN [Suspect]
     Active Substance: VANCOMYCIN
     Indication: OSTEOMYELITIS
     Dosage: 17.8 MG/KG PER DOSE (OVER 90 MINUTES) EVERY 12 HOURS
     Route: 042
  2. AMPICILLIN SODIUM W/SULBACTAM [Concomitant]
     Indication: PRODUCT USED FOR UNKNOWN INDICATION
     Dosage: UNK
     Route: 065
  3. VANCOMYCIN [Suspect]
     Active Substance: VANCOMYCIN
     Indication: CELLULITIS
     Dosage: 17.8 MG/KG PER DOSE (OVER 120 MINUTES) EVERY 12 HOURS
     Route: 042

REACTIONS (1)
  - Red man syndrome [Recovered/Resolved]
